FAERS Safety Report 7954345-9 (Version None)
Quarter: 2011Q4

REPORT INFORMATION
  Report Type: 
  Country: None (occurrence: None)
  Receive Date: 20111202
  Receipt Date: 20111123
  Transmission Date: 20120403
  Serious: Yes (Other)
  Sender: FDA-Public Use
  Company Number: US-JNJFOC-20111112007

PATIENT
  Age: 6 Year
  Sex: Male

DRUGS (1)
  1. CHILDREN'S BENADRYL ANTI-ITCH GEL FOR KIDS [Suspect]
     Indication: PRURITUS
     Route: 061
     Dates: start: 20111101, end: 20111123

REACTIONS (4)
  - OCULAR HYPERAEMIA [None]
  - RASH MACULAR [None]
  - APPLICATION SITE PAIN [None]
  - APPLICATION SITE PRURITUS [None]
